FAERS Safety Report 4999140-8 (Version None)
Quarter: 2006Q2

REPORT INFORMATION
  Report Type: 
  Country: None (occurrence: None)
  Receive Date: 20060509
  Receipt Date: 20060421
  Transmission Date: 20061013
  Serious: Yes (Other)
  Sender: FDA-Public Use
  Company Number: US_0509121838

PATIENT
  Age: 45 Year
  Sex: Female
  Weight: 59 kg

DRUGS (4)
  1. ZYPREXA [Suspect]
     Dosage: 100 MG, EACH EVENING,
     Dates: start: 20020401, end: 20030401
  2. ZOLOFT [Concomitant]
  3. BUPROPION HCL [Concomitant]
  4. NEFAZODONE HCL [Concomitant]

REACTIONS (5)
  - BLOOD CHOLESTEROL ABNORMAL [None]
  - CHOLELITHIASIS [None]
  - DIABETES MELLITUS [None]
  - HEPATITIS VIRAL [None]
  - PRESCRIBED OVERDOSE [None]
